FAERS Safety Report 6453588-3 (Version None)
Quarter: 2009Q4

REPORT INFORMATION
  Report Type: 
  Country: None (occurrence: None)
  Receive Date: 20091124
  Receipt Date: 20091111
  Transmission Date: 20100525
  Serious: Yes (Death)
  Sender: FDA-Public Use
  Company Number: JP-BAYER-200914344BYL

PATIENT
  Age: 74 Year
  Sex: Female

DRUGS (4)
  1. BUFFERIN [Suspect]
     Indication: DRUG USE FOR UNKNOWN INDICATION
     Route: 048
  2. BUFFERIN [Suspect]
     Route: 048
     Dates: start: 20061001, end: 20061101
  3. ALDACTONE [Suspect]
     Indication: DRUG USE FOR UNKNOWN INDICATION
     Route: 048
  4. ALDACTONE [Suspect]
     Route: 048
     Dates: start: 20061001, end: 20061101

REACTIONS (1)
  - TOXIC EPIDERMAL NECROLYSIS [None]
